FAERS Safety Report 20562809 (Version 2)
Quarter: 2022Q1

REPORT INFORMATION
  Report Type: Report from Study
  Country: BR (occurrence: BR)
  Receive Date: 20220307
  Receipt Date: 20220314
  Transmission Date: 20220423
  Serious: Yes (Hospitalization, Other)
  Sender: FDA-Public Use
  Company Number: BR-ABBVIE-22K-020-4303376-00

PATIENT
  Age: 41 Year
  Sex: Male
  Weight: 107 kg

DRUGS (1)
  1. SKYRIZI [Suspect]
     Active Substance: RISANKIZUMAB-RZAA
     Indication: Psoriasis
     Route: 058
     Dates: start: 20210419

REACTIONS (3)
  - Infarction [Recovering/Resolving]
  - Arterial thrombosis [Unknown]
  - Cardiovascular examination abnormal [Unknown]

NARRATIVE: CASE EVENT DATE: 20220220
